FAERS Safety Report 17237764 (Version 2)
Quarter: 2020Q1

REPORT INFORMATION
  Report Type: Spontaneous
  Country: FR (occurrence: FR)
  Receive Date: 20200106
  Receipt Date: 20200130
  Transmission Date: 20200409
  Serious: Yes (Life-Threatening, Hospitalization)
  Sender: FDA-Public Use
  Company Number: FR-MYLANLABS-2020M1001606

PATIENT
  Age: 38 Year
  Sex: Female
  Weight: 72 kg

DRUGS (3)
  1. IDARUBICIN [Suspect]
     Active Substance: IDARUBICIN
     Indication: LYMPHANGIOLEIOMYOMATOSIS
     Dosage: 9 MILLIGRAM/SQ. METER
     Route: 041
     Dates: start: 20190601, end: 20190605
  2. MIDOSTAURINE [Suspect]
     Active Substance: MIDOSTAURIN
     Indication: LYMPHANGIOLEIOMYOMATOSIS
     Dosage: 100 MILLIGRAM, QD
     Route: 048
     Dates: start: 20190606
  3. CYTARABINE. [Suspect]
     Active Substance: CYTARABINE
     Indication: LYMPHANGIOLEIOMYOMATOSIS
     Dosage: 200 MILLIGRAM/SQ. METER
     Route: 041
     Dates: start: 20190531, end: 20190606

REACTIONS (1)
  - Pericarditis constrictive [Recovering/Resolving]

NARRATIVE: CASE EVENT DATE: 201906
